FAERS Safety Report 5885507-2 (Version None)
Quarter: 2008Q3

REPORT INFORMATION
  Report Type: 
  Country: None (occurrence: None)
  Receive Date: 20080915
  Receipt Date: 20080915
  Transmission Date: 20090109
  Serious: No
  Sender: FDA-Public Use
  Company Number: None

PATIENT
  Age: 5 Year
  Sex: Female

DRUGS (1)
  1. PROGRAF [Suspect]
     Dosage: CAPSULE

REACTIONS (7)
  - DRUG LEVEL CHANGED [None]
  - HEADACHE [None]
  - HYPERTENSION [None]
  - LIVER TRANSPLANT REJECTION [None]
  - MEDICATION ERROR [None]
  - PRURITUS [None]
  - WRONG TECHNIQUE IN DRUG USAGE PROCESS [None]
